FAERS Safety Report 8152419-3 (Version None)
Quarter: 2012Q1

REPORT INFORMATION
  Report Type: 
  Country: None (occurrence: None)
  Receive Date: 20120103
  Receipt Date: 20110923
  Transmission Date: 20120608
  Serious: No
  Sender: FDA-Public Use
  Company Number: AE-2011-001782

PATIENT
  Age: 48 Year
  Sex: Male
  Weight: 73.0291 kg

DRUGS (8)
  1. ALEVE [Concomitant]
  2. KEFLEX [Concomitant]
  3. PAXIL [Concomitant]
  4. PEGINTRON (PEGINTERFERON ALFA-2A) [Concomitant]
  5. SOMA [Concomitant]
  6. INCIVEK [Suspect]
     Dosage: 2250 MG (750 MG,1 IN 8 HR),ORAL
     Route: 048
     Dates: start: 20110908
  7. RIBAVIRIN [Concomitant]
  8. TRAMADOL HCL [Concomitant]

REACTIONS (6)
  - MOUTH ULCERATION [None]
  - PRURITUS [None]
  - ANORECTAL DISCOMFORT [None]
  - DRUG DOSE OMISSION [None]
  - ANAL PRURITUS [None]
  - SLEEP PHASE RHYTHM DISTURBANCE [None]
